FAERS Safety Report 5068039-3 (Version None)
Quarter: 2006Q3

REPORT INFORMATION
  Report Type: 
  Country: None (occurrence: None)
  Receive Date: 20060731
  Receipt Date: 20060718
  Transmission Date: 20061208
  Serious: Yes (Hospitalization)
  Sender: FDA-Public Use
  Company Number: FACT0600310

PATIENT
  Age: 45 Year
  Sex: Male
  Weight: 83.9 kg

DRUGS (2)
  1. FACTIVE [Suspect]
     Indication: RESPIRATORY TRACT INFECTION BACTERIAL
     Dosage: 320 MG,QD, ORAL
     Route: 048
     Dates: start: 20060602, end: 20060606
  2. MEDROL ACETATE [Suspect]
     Indication: UPPER RESPIRATORY TRACT INFECTION
     Dates: start: 20060602, end: 20060606

REACTIONS (6)
  - ACUTE PSYCHOSIS [None]
  - DELUSION [None]
  - LEGAL PROBLEM [None]
  - MANIA [None]
  - PARANOIA [None]
  - ROTATOR CUFF SYNDROME [None]
